FAERS Safety Report 9772871 (Version 1)
Quarter: 2013Q4

REPORT INFORMATION
  Report Type: Spontaneous
  Country: IT (occurrence: IT)
  Receive Date: 20131219
  Receipt Date: 20131219
  Transmission Date: 20140711
  Serious: Yes (Other)
  Sender: FDA-Public Use
  Company Number: PHHY2013IT146035

PATIENT
  Age: 79 Year
  Sex: Male

DRUGS (1)
  1. AMIODARONE HYDROCHLORIDE [Suspect]

REACTIONS (3)
  - Septic shock [Unknown]
  - Pulmonary fibrosis [Unknown]
  - Hypothyroidism [Unknown]
